FAERS Safety Report 21253158 (Version 11)
Quarter: 2022Q4

REPORT INFORMATION
  Report Type: Report from Study
  Country: GT (occurrence: None)
  Receive Date: 20220825
  Receipt Date: 20221107
  Transmission Date: 20230113
  Serious: Yes (Hospitalization)
  Sender: FDA-Public Use
  Company Number: GT-Eisai Medical Research-EC-2022-116437

PATIENT
  Age: 54 Year
  Sex: Male
  Weight: 53.07 kg

DRUGS (8)
  1. LENVATINIB [Suspect]
     Active Substance: LENVATINIB
     Indication: Clear cell renal cell carcinoma
     Route: 048
     Dates: start: 20220405, end: 20220531
  2. LENVATINIB [Suspect]
     Active Substance: LENVATINIB
     Route: 048
     Dates: start: 20220810, end: 20220817
  3. QUAVONLIMAB [Suspect]
     Active Substance: QUAVONLIMAB
     Indication: Clear cell renal cell carcinoma
     Dosage: QUAVONLIMAB (MK-1308) 25 MG + PEMBROLIZUMAB (MK-3475) 400 MG
     Route: 042
     Dates: start: 20220405, end: 20220517
  4. FERROUS FUMARATE\FOLIC ACID [Concomitant]
     Active Substance: FERROUS FUMARATE\FOLIC ACID
     Dates: start: 20220426
  5. HYDROCHLOROTHIAZIDE\OLMESARTAN MEDOXOMIL [Concomitant]
     Active Substance: HYDROCHLOROTHIAZIDE\OLMESARTAN MEDOXOMIL
     Dates: start: 20220426
  6. CLINDAMYCIN [Concomitant]
     Active Substance: CLINDAMYCIN
     Dates: start: 20220517, end: 20220524
  7. CIPROFLOXACIN [Concomitant]
     Active Substance: CIPROFLOXACIN
     Dates: start: 20220517, end: 20220521
  8. PEMBROLIZUMAB [Suspect]
     Active Substance: PEMBROLIZUMAB

REACTIONS (4)
  - Pancreatitis acute [Recovered/Resolved]
  - Enterocutaneous fistula [Recovered/Resolved with Sequelae]
  - Hyperkalaemia [Recovered/Resolved]
  - Acute kidney injury [Recovered/Resolved]

NARRATIVE: CASE EVENT DATE: 20220601
